FAERS Safety Report 11150281 (Version 1)
Quarter: 2015Q2

REPORT INFORMATION
  Report Type: Report from Study
  Country: GB (occurrence: GB)
  Receive Date: 20150530
  Receipt Date: 20150530
  Transmission Date: 20150821
  Serious: Yes (Other)
  Sender: FDA-Public Use
  Company Number: GB-ABBVIE-15K-167-1397752-00

PATIENT
  Sex: Female

DRUGS (1)
  1. HUMIRA [Suspect]
     Active Substance: ADALIMUMAB
     Indication: PRODUCT USED FOR UNKNOWN INDICATION
     Route: 065
     Dates: end: 201503

REACTIONS (10)
  - Head discomfort [Unknown]
  - Visual impairment [Unknown]
  - Headache [Not Recovered/Not Resolved]
  - Ophthalmological examination abnormal [Unknown]
  - Muscular weakness [Unknown]
  - Pain in jaw [Not Recovered/Not Resolved]
  - Balance disorder [Recovering/Resolving]
  - Musculoskeletal discomfort [Unknown]
  - Hypoaesthesia [Unknown]
  - Pain in extremity [Not Recovered/Not Resolved]
